FAERS Safety Report 9975623 (Version 1)
Quarter: 2014Q1

REPORT INFORMATION
  Report Type: Spontaneous
  Country: US (occurrence: US)
  Receive Date: 20140306
  Receipt Date: 20140306
  Transmission Date: 20141002
  Serious: No
  Sender: FDA-Public Use
  Company Number: US-ABBVIE-13P-163-1159701-00

PATIENT
  Age: 58 Year
  Sex: Female
  Weight: 54.48 kg

DRUGS (3)
  1. HUMIRA [Suspect]
     Indication: RHEUMATOID ARTHRITIS
     Dates: start: 20131015
  2. HUMIRA [Suspect]
     Dates: start: 201310, end: 201310
  3. HUMIRA [Suspect]
     Dates: start: 201310

REACTIONS (7)
  - Dizziness [Unknown]
  - Blood glucose decreased [Unknown]
  - Palpitations [Recovered/Resolved]
  - Oropharyngeal pain [Recovered/Resolved]
  - Sneezing [Recovered/Resolved]
  - Nasopharyngitis [Recovered/Resolved]
  - Loss of consciousness [Recovered/Resolved]
